FAERS Safety Report 8293041-8 (Version None)
Quarter: 2012Q2

REPORT INFORMATION
  Report Type: 
  Country: None (occurrence: None)
  Receive Date: 20120417
  Receipt Date: 20111103
  Transmission Date: 20120825
  Serious: No
  Sender: FDA-Public Use
  Company Number: US-ASTRAZENECA-2011SE67004

PATIENT
  Age: 58 Year
  Sex: Female

DRUGS (2)
  1. ATENOLOL [Concomitant]
  2. NEXIUM [Suspect]
     Route: 048

REACTIONS (4)
  - DYSPHAGIA [None]
  - ABDOMINAL DISCOMFORT [None]
  - DRUG DOSE OMISSION [None]
  - ODYNOPHAGIA [None]
